FAERS Safety Report 18410448 (Version 1)
Quarter: 2020Q4

REPORT INFORMATION
  Report Type: Spontaneous
  Country: US (occurrence: US)
  Receive Date: 20201021
  Receipt Date: 20201021
  Transmission Date: 20210114
  Serious: Yes (Other)
  Sender: FDA-Public Use
  Company Number: US-PFIZER INC-2020406036

PATIENT
  Age: 69 Year
  Sex: Female
  Weight: 75.3 kg

DRUGS (1)
  1. CHANTIX [Suspect]
     Active Substance: VARENICLINE TARTRATE
     Indication: SMOKING CESSATION THERAPY
     Dosage: UNK
     Route: 048
     Dates: start: 2018

REACTIONS (7)
  - Sleep disorder [Unknown]
  - Reduced bladder capacity [Unknown]
  - Myocardial infarction [Unknown]
  - Road traffic accident [Unknown]
  - Micturition disorder [Unknown]
  - Pollakiuria [Unknown]
  - Tobacco user [Unknown]
